FAERS Safety Report 7121375-9 (Version None)
Quarter: 2010Q4

REPORT INFORMATION
  Report Type: 
  Country: None (occurrence: None)
  Receive Date: 20101124
  Receipt Date: 20101115
  Transmission Date: 20110411
  Serious: Yes (Hospitalization, Other)
  Sender: FDA-Public Use
  Company Number: DE-ELI_LILLY_AND_COMPANY-DE201007003899

PATIENT
  Age: 64 Year
  Sex: Male

DRUGS (6)
  1. EFFIENT [Suspect]
     Indication: ACUTE CORONARY SYNDROME
     Dosage: 10 MG, UNKNOWN
     Route: 048
     Dates: start: 20100201
  2. ASPIRIN [Concomitant]
     Indication: ACUTE CORONARY SYNDROME
     Dosage: 100 MG, UNKNOWN
     Route: 048
     Dates: start: 20100201
  3. OMEPRAZOLE [Concomitant]
     Indication: GASTRIC HAEMORRHAGE
     Dosage: 80 MG, UNKNOWN
     Route: 048
     Dates: start: 20100201
  4. METOPROLOL [Concomitant]
     Dosage: 47.5 MG, EACH MORNING
  5. SIMVAHEXAL [Concomitant]
     Dosage: 40 MG, EACH MORNING
  6. VALSARTAN [Concomitant]
     Dosage: 80 MG, EACH MORNING

REACTIONS (2)
  - GASTRIC ULCER HAEMORRHAGE [None]
  - HELICOBACTER GASTRITIS [None]
